FAERS Safety Report 12631882 (Version 2)
Quarter: 2016Q3

REPORT INFORMATION
  Report Type: Spontaneous
  Country: US (occurrence: US)
  Receive Date: 20160808
  Receipt Date: 20160808
  Transmission Date: 20161109
  Serious: No
  Sender: FDA-Public Use
  Company Number: US-BEH-2016061322

PATIENT
  Sex: Female
  Weight: 72 kg

DRUGS (19)
  1. HIZENTRA [Suspect]
     Active Substance: HUMAN IMMUNOGLOBULIN G
     Indication: IMMUNODEFICIENCY COMMON VARIABLE
     Route: 058
     Dates: start: 20100624
  2. MULTIVITAMINS [Concomitant]
     Active Substance: VITAMINS
  3. LYRICA [Concomitant]
     Active Substance: PREGABALIN
  4. RESTORIL [Concomitant]
     Active Substance: TEMAZEPAM
  5. ZETIA [Concomitant]
     Active Substance: EZETIMIBE
  6. LMX [Concomitant]
     Active Substance: LIDOCAINE
  7. LOPRESSOR [Concomitant]
     Active Substance: METOPROLOL TARTRATE
  8. NIACIN. [Concomitant]
     Active Substance: NIACIN
  9. EPIPEN [Concomitant]
     Active Substance: EPINEPHRINE
  10. SENNA [Concomitant]
     Active Substance: SENNA LEAF\SENNOSIDES\SENNOSIDES A AND B
  11. LIPITOR [Concomitant]
     Active Substance: ATORVASTATIN CALCIUM
  12. ADVIL [Concomitant]
     Active Substance: IBUPROFEN
  13. DIPHENHYDRAMINE. [Concomitant]
     Active Substance: DIPHENHYDRAMINE
  14. LIDOCAINE/PRILOCAINE [Concomitant]
     Active Substance: LIDOCAINE\PRILOCAINE
  15. PRILOSEC [Concomitant]
     Active Substance: OMEPRAZOLE MAGNESIUM
  16. PERCOCET [Concomitant]
     Active Substance: ACETAMINOPHEN\OXYCODONE HYDROCHLORIDE
  17. NEXIUM [Concomitant]
     Active Substance: ESOMEPRAZOLE MAGNESIUM
  18. FISH OIL [Concomitant]
     Active Substance: FISH OIL
  19. NEURONTIN [Concomitant]
     Active Substance: GABAPENTIN

REACTIONS (1)
  - Nasopharyngitis [Unknown]
